FAERS Safety Report 7010763-7 (Version None)
Quarter: 2010Q3

REPORT INFORMATION
  Report Type: 
  Country: None (occurrence: None)
  Receive Date: 20100923
  Receipt Date: 20100917
  Transmission Date: 20110219
  Serious: No
  Sender: FDA-Public Use
  Company Number: US-PFIZER INC-2010118171

PATIENT
  Sex: Male
  Weight: 65.76 kg

DRUGS (5)
  1. LIPITOR [Suspect]
     Indication: BLOOD CHOLESTEROL INCREASED
     Dosage: 10 MG, 1X/DAY
     Route: 048
  2. ZOCOR [Suspect]
     Indication: BLOOD CHOLESTEROL INCREASED
     Dosage: UNK
     Route: 048
  3. PRAVACHOL [Suspect]
     Indication: BLOOD CHOLESTEROL INCREASED
     Dosage: UNK
     Route: 048
  4. DIOSMIN/HESPERIDIN/HORSE CHESTNUT EXTRACT [Suspect]
     Indication: SUPPLEMENTATION THERAPY
     Dosage: [50 MG]/[450 MG] / [250 MG], 2X/DAY
     Route: 048
     Dates: start: 20100801, end: 20100801
  5. VALSARTAN [Concomitant]
     Indication: HYPERTENSION
     Dosage: 80 MG, 1X/DAY
     Route: 048

REACTIONS (6)
  - FLATULENCE [None]
  - GASTRIC DISORDER [None]
  - GASTROOESOPHAGEAL REFLUX DISEASE [None]
  - MUSCLE DISORDER [None]
  - NIGHTMARE [None]
  - SKIN LESION [None]
